FAERS Safety Report 21726708 (Version 1)
Quarter: 2022Q4

REPORT INFORMATION
  Report Type: Report from Study
  Country: US (occurrence: US)
  Receive Date: 20221214
  Receipt Date: 20221214
  Transmission Date: 20230113
  Serious: No
  Sender: FDA-Public Use
  Company Number: US-ABBVIE-4190251

PATIENT
  Sex: Male

DRUGS (1)
  1. HUMIRA [Suspect]
     Active Substance: ADALIMUMAB
     Indication: Hidradenitis
     Dosage: CITRATE FREE, STRENGTH:40MG
     Route: 058

REACTIONS (4)
  - Bloody discharge [Not Recovered/Not Resolved]
  - Abscess limb [Not Recovered/Not Resolved]
  - Swelling [Not Recovered/Not Resolved]
  - Discharge [Not Recovered/Not Resolved]
